FAERS Safety Report 15527516 (Version 1)
Quarter: 2018Q4

REPORT INFORMATION
  Report Type: Spontaneous
  Country: US (occurrence: US)
  Receive Date: 20181018
  Receipt Date: 20181018
  Transmission Date: 20190205
  Serious: Yes (Other)
  Sender: FDA-Public Use
  Company Number: US-ARBOR PHARMACEUTICALS, LLC-US-2018ARB001042

PATIENT
  Sex: Female

DRUGS (2)
  1. OTOVEL [Suspect]
     Active Substance: CIPROFLOXACIN\FLUOCINOLONE ACETONIDE
     Indication: EAR DISORDER
     Dosage: UNK
  2. ACEBUTOLOL [Concomitant]
     Active Substance: ACEBUTOLOL
     Indication: ATRIAL FIBRILLATION
     Dosage: UNK

REACTIONS (5)
  - Drug intolerance [Unknown]
  - Arrhythmia [Unknown]
  - Dizziness [Unknown]
  - Palpitations [Unknown]
  - Eye movement disorder [Unknown]
